FAERS Safety Report 9639214 (Version 2)
Quarter: 2013Q4

REPORT INFORMATION
  Report Type: Spontaneous
  Country: AU (occurrence: AU)
  Receive Date: 20131022
  Receipt Date: 20131112
  Transmission Date: 20140711
  Serious: Yes (Hospitalization, Other)
  Sender: FDA-Public Use
  Company Number: AU-ROCHE-1289744

PATIENT
  Age: 6 Year
  Sex: Male
  Weight: 31 kg

DRUGS (9)
  1. MABTHERA [Suspect]
     Indication: NEPHROTIC SYNDROME
     Dosage: 4 DOSES
     Route: 065
  2. MABTHERA [Suspect]
     Dosage: 4 DOSES
     Route: 042
     Dates: start: 20130927, end: 20130928
  3. OMEPRAZOLE [Concomitant]
     Indication: GASTROOESOPHAGEAL REFLUX DISEASE
     Route: 048
  4. PREDNISOLONE [Concomitant]
     Indication: NEPHROTIC SYNDROME
     Route: 048
  5. BACTRIM [Concomitant]
     Indication: PROPHYLAXIS
     Dosage: MONDAY, WEDNESDAY AND FRIDAY
     Route: 048
  6. LISINOPRIL [Concomitant]
     Indication: HYPERTENSION
     Route: 048
  7. LISINOPRIL [Concomitant]
     Indication: PROTEINURIA
  8. PROMETHAZINE [Concomitant]
     Route: 065
  9. PARACETAMOL [Concomitant]
     Route: 065

REACTIONS (7)
  - Nephrotic syndrome [Unknown]
  - Swelling face [Recovered/Resolved]
  - Urticaria [Recovered/Resolved]
  - Rash [Recovered/Resolved]
  - Throat tightness [Recovered/Resolved]
  - Lip swelling [Recovered/Resolved]
  - Erythema [Recovered/Resolved]
